FAERS Safety Report 16311832 (Version 2)
Quarter: 2019Q2

REPORT INFORMATION
  Report Type: Spontaneous
  Country: BR (occurrence: BR)
  Receive Date: 20190514
  Receipt Date: 20190521
  Transmission Date: 20190711
  Serious: Yes (Other)
  Sender: FDA-Public Use
  Company Number: PHHY2019BR109590

PATIENT
  Sex: Male
  Weight: 67 kg

DRUGS (2)
  1. ZOTEON PODHALER [Suspect]
     Active Substance: TOBRAMYCIN
     Indication: PSEUDOMONAS INFECTION
  2. ZOTEON PODHALER [Suspect]
     Active Substance: TOBRAMYCIN
     Indication: CYSTIC FIBROSIS
     Dosage: 1 DF, BID (1 BLISTER CARD IN MORNING AT AND 1 BLISTER CARD IN NIGHT)
     Route: 055

REACTIONS (4)
  - Pseudomonas infection [Not Recovered/Not Resolved]
  - Cystic fibrosis [Not Recovered/Not Resolved]
  - Drug dependence [Unknown]
  - Condition aggravated [Not Recovered/Not Resolved]
